FAERS Safety Report 6792621-6 (Version None)
Quarter: 2010Q2

REPORT INFORMATION
  Report Type: 
  Country: None (occurrence: None)
  Receive Date: 20100624
  Receipt Date: 20080922
  Transmission Date: 20101027
  Serious: No
  Sender: FDA-Public Use
  Company Number: US-PFIZER INC-2008076944

PATIENT
  Sex: Female
  Weight: 75 kg

DRUGS (4)
  1. XALATAN [Suspect]
     Indication: GLAUCOMA
     Dates: start: 20080301
  2. HYDROCHLOROTHIAZIDE [Concomitant]
  3. ATENOLOL [Concomitant]
  4. VALIUM [Concomitant]

REACTIONS (3)
  - EYE DISORDER [None]
  - EYE IRRITATION [None]
  - INCORRECT DOSE ADMINISTERED [None]
